FAERS Safety Report 15439211 (Version 1)
Quarter: 2018Q3

REPORT INFORMATION
  Report Type: Report from Study
  Country: ES (occurrence: ES)
  Receive Date: 20180928
  Receipt Date: 20180928
  Transmission Date: 20181010
  Serious: Yes (Other)
  Sender: FDA-Public Use
  Company Number: ES-B.I. PHARMACEUTICALS,INC./RIDGEFIELD-2018-BI-047301

PATIENT
  Age: 60 Year
  Sex: Male

DRUGS (1)
  1. MIRAPEXIN [Suspect]
     Active Substance: PRAMIPEXOLE
     Indication: PARKINSON^S DISEASE
     Route: 065

REACTIONS (2)
  - Gambling disorder [Recovered/Resolved]
  - Suicidal ideation [Recovered/Resolved]
